FAERS Safety Report 6527121-1 (Version None)
Quarter: 2010Q1

REPORT INFORMATION
  Report Type: 
  Country: None (occurrence: None)
  Receive Date: 20100105
  Receipt Date: 20091225
  Transmission Date: 20100710
  Serious: Yes (Death)
  Sender: FDA-Public Use
  Company Number: TR-ELI_LILLY_AND_COMPANY-TR200912005698

PATIENT
  Sex: Female

DRUGS (3)
  1. HUMULIN R [Suspect]
     Indication: DIABETES MELLITUS
     Dosage: 4 U, 3/D (MORNING, NOON AND EVENING)
     Route: 058
     Dates: start: 20090101
  2. HUMULIN N [Suspect]
     Indication: DIABETES MELLITUS
     Dosage: 4 U, DAILY (1/D)
     Route: 058
     Dates: start: 20090101
  3. CORASPIN [Concomitant]
     Indication: CARDIAC DISORDER
     Dosage: UNK, DAILY (1/D)
     Route: 065

REACTIONS (1)
  - RESPIRATORY FAILURE [None]
